FAERS Safety Report 14846150 (Version 1)
Quarter: 2018Q2

REPORT INFORMATION
  Report Type: Spontaneous
  Country: NL (occurrence: NL)
  Receive Date: 20180504
  Receipt Date: 20180504
  Transmission Date: 20180711
  Serious: Yes (Hospitalization, Other)
  Sender: FDA-Public Use
  Company Number: PHHY2017NL202854

PATIENT
  Age: 56 Year

DRUGS (8)
  1. OXALIPLATIN. [Suspect]
     Active Substance: OXALIPLATIN
     Dosage: UNK
     Route: 065
     Dates: start: 20170803
  2. OXALIPLATIN. [Suspect]
     Active Substance: OXALIPLATIN
     Indication: COLORECTAL CANCER
     Dosage: UNK
     Route: 065
     Dates: start: 20170622
  3. PANITUMUMAB [Suspect]
     Active Substance: PANITUMUMAB
     Indication: COLORECTAL CANCER METASTATIC
     Dosage: 500 MG, UNK
     Route: 065
  4. PANITUMUMAB [Suspect]
     Active Substance: PANITUMUMAB
     Indication: COLORECTAL CANCER METASTATIC
     Dosage: UNK
     Route: 065
  5. LEUCOVORIN. [Suspect]
     Active Substance: LEUCOVORIN
     Dosage: UNK
     Route: 065
     Dates: start: 20170803
  6. LEUCOVORIN. [Suspect]
     Active Substance: LEUCOVORIN
     Indication: COLORECTAL CANCER METASTATIC
     Dosage: UNK
     Route: 065
     Dates: start: 20170622
  7. 5-FLUOROURACIL [Suspect]
     Active Substance: FLUOROURACIL
     Indication: COLORECTAL CANCER
     Dosage: UNK
     Route: 065
     Dates: start: 20170622
  8. 5-FLUOROURACIL [Suspect]
     Active Substance: FLUOROURACIL
     Dosage: UNK
     Route: 065
     Dates: start: 20170803

REACTIONS (2)
  - Enteritis [Recovering/Resolving]
  - Febrile neutropenia [Recovering/Resolving]

NARRATIVE: CASE EVENT DATE: 20170811
